FAERS Safety Report 25331441 (Version 1)
Quarter: 2025Q2

REPORT INFORMATION
  Report Type: Spontaneous
  Country: US (occurrence: US)
  Receive Date: 20250519
  Receipt Date: 20250519
  Transmission Date: 20250717
  Serious: Yes (Other)
  Sender: EPIC PHARM
  Company Number: US-EPICPHARMA-US-2025EPCLIT00575

PATIENT
  Age: 74 Year
  Sex: Female

DRUGS (1)
  1. AMIODARONE HYDROCHLORIDE [Suspect]
     Active Substance: AMIODARONE HYDROCHLORIDE
     Indication: Ventricular arrhythmia
     Route: 065

REACTIONS (3)
  - Hyperammonaemic encephalopathy [Recovering/Resolving]
  - Hyperthyroidism [Recovering/Resolving]
  - Product use in unapproved indication [Unknown]
